FAERS Safety Report 18518398 (Version 1)
Quarter: 2020Q4

REPORT INFORMATION
  Report Type: Report from Study
  Country: EG (occurrence: EG)
  Receive Date: 20201118
  Receipt Date: 20201118
  Transmission Date: 20210114
  Serious: Yes (Other)
  Sender: FDA-Public Use
  Company Number: NVSC2020EG299840

PATIENT
  Age: 30 Year
  Sex: Female

DRUGS (1)
  1. GLIVEC [Suspect]
     Active Substance: IMATINIB MESYLATE
     Indication: CHRONIC MYELOID LEUKAEMIA
     Dosage: 400 MG, QD
     Route: 065
     Dates: start: 2014, end: 2016

REACTIONS (23)
  - Discomfort [Recovering/Resolving]
  - Insomnia [Recovered/Resolved]
  - Ovarian haemorrhage [Not Recovered/Not Resolved]
  - Heart rate increased [Recovered/Resolved]
  - Dysuria [Not Recovered/Not Resolved]
  - Weight increased [Not Recovered/Not Resolved]
  - Dizziness [Recovered/Resolved]
  - Bone pain [Recovering/Resolving]
  - Headache [Recovering/Resolving]
  - Cough [Recovering/Resolving]
  - Pyrexia [Recovering/Resolving]
  - Generalised oedema [Recovering/Resolving]
  - Cardiovascular disorder [Recovered/Resolved]
  - Cytogenetic analysis abnormal [Not Recovered/Not Resolved]
  - Pain [Recovering/Resolving]
  - Hypertension [Recovered/Resolved]
  - Product dose omission issue [Not Recovered/Not Resolved]
  - Back pain [Not Recovered/Not Resolved]
  - Oedema peripheral [Recovering/Resolving]
  - Decreased immune responsiveness [Recovering/Resolving]
  - Nasopharyngitis [Recovering/Resolving]
  - Syncope [Recovered/Resolved]
  - Ovarian enlargement [Not Recovered/Not Resolved]

NARRATIVE: CASE EVENT DATE: 2015
